FAERS Safety Report 23407186 (Version 1)
Quarter: 2024Q1

REPORT INFORMATION
  Report Type: Report from Study
  Country: CO (occurrence: CO)
  Receive Date: 20240116
  Receipt Date: 20240116
  Transmission Date: 20240410
  Serious: Yes (Other)
  Sender: FDA-Public Use
  Company Number: CO-ABBVIE-5187211

PATIENT
  Sex: Female
  Weight: 64 kg

DRUGS (4)
  1. HUMIRA [Suspect]
     Active Substance: ADALIMUMAB
     Indication: Crohn^s disease
     Dosage: FORM STRENGTH: 40 MG
     Route: 058
     Dates: start: 20220824, end: 20230323
  2. CALCIUM [Concomitant]
     Active Substance: CALCIUM
     Indication: Product used for unknown indication
  3. FOLIC ACID [Concomitant]
     Active Substance: FOLIC ACID
     Indication: Product used for unknown indication
  4. OMEPRAZOLE [Concomitant]
     Active Substance: OMEPRAZOLE
     Indication: Product used for unknown indication
     Dosage: STOP DATE TEXT: SUSPENDED AFTER START HUMIRA

REACTIONS (6)
  - Umbilical cord around neck [Recovered/Resolved]
  - Maternal exposure during pregnancy [Unknown]
  - Hypertension [Recovered/Resolved]
  - Weight increased [Recovered/Resolved]
  - Pre-eclampsia [Recovered/Resolved]
  - Live birth [Unknown]

NARRATIVE: CASE EVENT DATE: 20230101
